FAERS Safety Report 21769659 (Version 2)
Quarter: 2022Q4

REPORT INFORMATION
  Report Type: Spontaneous
  Country: CH (occurrence: CH)
  Receive Date: 20221223
  Receipt Date: 20221227
  Transmission Date: 20230113
  Serious: Yes (Life-Threatening, Hospitalization)
  Sender: FDA-Public Use
  Company Number: CH-SM-2022-22248

PATIENT
  Age: 48 Year
  Sex: Male
  Weight: 88 kg

DRUGS (11)
  1. MABTHERA [Suspect]
     Active Substance: RITUXIMAB
     Indication: Mantle cell lymphoma stage IV
     Dosage: LAST DOSE ON 03/21/2022, TOTAL 12...
     Route: 058
     Dates: start: 202007, end: 20220321
  2. MABTHERA [Suspect]
     Active Substance: RITUXIMAB
     Indication: Mantle cell lymphoma stage IV
     Dosage: MANTLE CELL LYMPHOMA - TREATMENT AS PART OF THE TRIANGLE STUDY, RANDOMIZATION IN ARM A (STANDARD T..
     Route: 065
     Dates: start: 20191217, end: 20200405
  3. CRESTOR [Suspect]
     Active Substance: ROSUVASTATIN CALCIUM
     Indication: Mantle cell lymphoma stage IV
     Dosage: ROSUVASTATIN (CRESTOR) 10 MG 1-0-0-0, 2020 PAUSIERT, ZUVOR ATORVASTATIN (SEIT MIND. 2016)
     Route: 065
     Dates: start: 2021
  4. SULFAMETHOXAZOLE\TRIMETHOPRIM [Suspect]
     Active Substance: SULFAMETHOXAZOLE\TRIMETHOPRIM
     Indication: Mantle cell lymphoma stage IV
     Route: 065
     Dates: start: 201912
  5. ASPIRIN [Concomitant]
     Active Substance: ASPIRIN
     Dates: start: 2016
  6. CYCLOPHOSPHAMIDE [Concomitant]
     Active Substance: CYCLOPHOSPHAMIDE
  7. DOXORUBICIN [Concomitant]
     Active Substance: DOXORUBICIN
  8. ONCOVIN [Concomitant]
     Active Substance: VINCRISTINE SULFATE
  9. DEXAMETHASONE [Concomitant]
     Active Substance: DEXAMETHASONE
  10. PLATINOL [Concomitant]
     Active Substance: CISPLATIN
  11. PREDNISONE [Concomitant]
     Active Substance: PREDNISONE
     Dosage: URRENTLY 10 MG/THE
     Route: 048
     Dates: start: 202009

REACTIONS (2)
  - Interstitial lung disease [Not Recovered/Not Resolved]
  - COVID-19 pneumonia [Not Recovered/Not Resolved]

NARRATIVE: CASE EVENT DATE: 20221121
